FAERS Safety Report 19467030 (Version 1)
Quarter: 2021Q2

REPORT INFORMATION
  Report Type: Spontaneous
  Country: US (occurrence: US)
  Receive Date: 20210628
  Receipt Date: 20210628
  Transmission Date: 20210717
  Serious: Yes (Other)
  Sender: FDA-Public Use
  Company Number: US-CIPLA LTD.-2021US04314

PATIENT

DRUGS (5)
  1. CISPLATIN. [Suspect]
     Active Substance: CISPLATIN
     Indication: SQUAMOUS CELL CARCINOMA OF THE HYPOPHARYNX
     Dosage: UNK
     Route: 065
  2. ACITRETIN. [Concomitant]
     Active Substance: ACITRETIN
     Indication: ACROKERATOSIS PARANEOPLASTICA
     Dosage: UNK
     Route: 048
  3. CARBOPLATIN. [Suspect]
     Active Substance: CARBOPLATIN
     Indication: SQUAMOUS CELL CARCINOMA OF THE HYPOPHARYNX
     Dosage: UNK
     Route: 065
  4. UREA. [Concomitant]
     Active Substance: UREA
     Indication: ACROKERATOSIS PARANEOPLASTICA
     Dosage: UNK
     Route: 061
  5. TRIAMCINOLONE [Concomitant]
     Active Substance: TRIAMCINOLONE
     Indication: ACROKERATOSIS PARANEOPLASTICA
     Dosage: UNK
     Route: 065

REACTIONS (2)
  - Mucosal inflammation [Unknown]
  - Dermatitis [Unknown]
